FAERS Safety Report 15637401 (Version 1)
Quarter: 2018Q4

REPORT INFORMATION
  Report Type: Spontaneous
  Country: US (occurrence: US)
  Receive Date: 20181120
  Receipt Date: 20181120
  Transmission Date: 20190205
  Serious: No
  Sender: FDA-Public Use
  Company Number: US-SUNOVION-2018SUN004467

PATIENT
  Sex: Female

DRUGS (1)
  1. LATUDA [Suspect]
     Active Substance: LURASIDONE HYDROCHLORIDE
     Dosage: 20 MG, UNK
     Route: 048

REACTIONS (7)
  - Tremor [Unknown]
  - Akathisia [Unknown]
  - Oral herpes [Unknown]
  - Poor sucking reflex [Unknown]
  - Dry mouth [Unknown]
  - Tongue ulceration [Unknown]
  - Restlessness [Unknown]
